FAERS Safety Report 6896437-1 (Version None)
Quarter: 2010Q3

REPORT INFORMATION
  Report Type: 
  Country: None (occurrence: None)
  Receive Date: 20100802
  Receipt Date: 20100726
  Transmission Date: 20110219
  Serious: Yes (Other)
  Sender: FDA-Public Use
  Company Number: US-WYE-H03959208

PATIENT
  Sex: Female
  Weight: 77.18 kg

DRUGS (4)
  1. PREMPRO [Suspect]
  2. PROVERA [Suspect]
  3. OGEN [Suspect]
  4. CYCRIN [Suspect]

REACTIONS (1)
  - BREAST CANCER METASTATIC [None]
